FAERS Safety Report 17255606 (Version 1)
Quarter: 2019Q4

REPORT INFORMATION
  Report Type: Spontaneous
  Country: US (occurrence: US)
  Receive Date: 20191216
  Receipt Date: 20191216
  Transmission Date: 20200122
  Serious: Yes (Hospitalization)
  Sender: FDA-Public Use
  Company Number: None

PATIENT
  Age: 64 Year
  Sex: Female

DRUGS (32)
  1. CRESTOR [Concomitant]
     Active Substance: ROSUVASTATIN CALCIUM
  2. FLUTICASONE. [Concomitant]
     Active Substance: FLUTICASONE
  3. HUMALOG INJ [Concomitant]
  4. LINZESS [Concomitant]
     Active Substance: LINACLOTIDE
  5. TYLENOL [Concomitant]
     Active Substance: ACETAMINOPHEN
  6. VITAMIN B-6 [Concomitant]
     Active Substance: PYRIDOXINE
  7. DOCUSATE SOD [Concomitant]
  8. LAMOTRIGINE. [Concomitant]
     Active Substance: LAMOTRIGINE
  9. LEVEMIR INJ [Concomitant]
  10. LORATADINE. [Concomitant]
     Active Substance: LORATADINE
  11. METOCLORPAM [Concomitant]
  12. POLYETHYLENE LIQ GLYCOL [Concomitant]
  13. VITAMIN C [Concomitant]
     Active Substance: ASCORBIC ACID
  14. FOLICE ACID [Concomitant]
  15. PROLIA [Concomitant]
     Active Substance: DENOSUMAB
  16. TORSEMIDE. [Concomitant]
     Active Substance: TORSEMIDE
  17. TRIAMCINOLON CRE [Concomitant]
  18. VITAMIN E [Concomitant]
     Active Substance: .ALPHA.-TOCOPHEROL
  19. ARANESP [Concomitant]
     Active Substance: DARBEPOETIN ALFA
  20. ASPIRIN. [Concomitant]
     Active Substance: ASPIRIN
  21. DILANTIN [Concomitant]
     Active Substance: PHENYTOIN
  22. METOPROL TAR [Concomitant]
  23. NORVASC [Concomitant]
     Active Substance: AMLODIPINE BESYLATE
  24. SILDENAFIL 20MG TAB [Suspect]
     Active Substance: SILDENAFIL
     Indication: COR PULMONALE
     Route: 048
     Dates: start: 20181213
  25. HYDROCD/BU [Concomitant]
  26. KEPPRA [Concomitant]
     Active Substance: LEVETIRACETAM
  27. OMEPRAZOLE. [Concomitant]
     Active Substance: OMEPRAZOLE
  28. VENTOLIN HFA [Concomitant]
     Active Substance: ALBUTEROL SULFATE
  29. MYSOLINE [Concomitant]
     Active Substance: PRIMIDONE
  30. CLOPIDOGREL [Concomitant]
     Active Substance: CLOPIDOGREL BISULFATE
  31. HYDRALAZINE [Concomitant]
     Active Substance: HYDRALAZINE HYDROCHLORIDE
  32. LORAZEPAM. [Concomitant]
     Active Substance: LORAZEPAM

REACTIONS (4)
  - Chest pain [None]
  - Cardiac failure congestive [None]
  - Renal failure [None]
  - Headache [None]

NARRATIVE: CASE EVENT DATE: 20191128
